FAERS Safety Report 8400461-7 (Version None)
Quarter: 2012Q2

REPORT INFORMATION
  Report Type: 
  Country: None (occurrence: None)
  Receive Date: 20120531
  Receipt Date: 20120525
  Transmission Date: 20120825
  Serious: Yes (Other)
  Sender: FDA-Public Use
  Company Number: US-GILEAD-2012-0055853

PATIENT
  Sex: Female

DRUGS (2)
  1. ARAVA [Concomitant]
  2. LETAIRIS [Suspect]
     Indication: PULMONARY HYPERTENSION
     Dosage: 5 MG, UNK
     Route: 048
     Dates: start: 20090330

REACTIONS (3)
  - PULMONARY ARTERIAL PRESSURE INCREASED [None]
  - LABORATORY TEST ABNORMAL [None]
  - PULMONARY ARTERIAL HYPERTENSION [None]
